FAERS Safety Report 4966487-0 (Version None)
Quarter: 2006Q2

REPORT INFORMATION
  Report Type: 
  Country: None (occurrence: None)
  Receive Date: 20060407
  Receipt Date: 20040721
  Transmission Date: 20061013
  Serious: Yes (Death)
  Sender: FDA-Public Use
  Company Number: GB-SANOFI-SYNTHELABO-F01200402054

PATIENT
  Sex: Male

DRUGS (4)
  1. OXALIPLATIN [Suspect]
     Indication: COLON CANCER
     Route: 042
     Dates: start: 20040622, end: 20040622
  2. CAPECITABINE [Suspect]
     Dosage: 1800 MG TWICE A DAY PER ORAL FROM D1 TO D15
     Route: 048
     Dates: start: 20040622, end: 20040706
  3. LOPERAMIDE [Concomitant]
  4. DOMPERIDONE [Concomitant]
     Dosage: UNK
     Route: 065
     Dates: start: 20040622

REACTIONS (2)
  - CARDIAC ARREST [None]
  - DIARRHOEA [None]
